FAERS Safety Report 9278459 (Version 1)
Quarter: 2013Q2

REPORT INFORMATION
  Report Type: Report from Study
  Country: US (occurrence: US)
  Receive Date: 20130508
  Receipt Date: 20130508
  Transmission Date: 20140414
  Serious: No
  Sender: FDA-Public Use
  Company Number: US-009507513-1305USA003205

PATIENT
  Sex: Female
  Weight: 99.41 kg

DRUGS (1)
  1. IMPLANON [Suspect]
     Dosage: UNK
     Dates: start: 20120131, end: 20130507

REACTIONS (2)
  - Abdominal pain [Unknown]
  - Metrorrhagia [Unknown]
